FAERS Safety Report 8613639-4 (Version None)
Quarter: 2012Q3

REPORT INFORMATION
  Report Type: 
  Country: None (occurrence: None)
  Receive Date: 20120823
  Receipt Date: 20120809
  Transmission Date: 20120928
  Serious: Yes (Hospitalization, Disabling, Other)
  Sender: FDA-Public Use
  Company Number: US-009507513-1203USA00413

PATIENT

DRUGS (26)
  1. FOSAMAX [Suspect]
     Dosage: 70 MG, QW
     Route: 048
     Dates: start: 20050501, end: 20080201
  2. FOSAMAX [Suspect]
  3. SINEMET [Concomitant]
     Indication: RESTLESS LEGS SYNDROME
     Dosage: 50/200 MG,HS
     Route: 048
  4. VITAMINS (UNSPECIFIED) [Concomitant]
     Indication: OSTEOPENIA
     Dosage: 1 DF, QD
     Dates: start: 19840101
  5. SINEMET [Concomitant]
     Dosage: 25/100 MG, HS
     Route: 048
  6. VITAMIN D [Concomitant]
     Indication: OSTEOPOROSIS
     Dosage: 400 IU, QD
     Dates: start: 20010101
  7. MIRAPEX [Concomitant]
     Dosage: 0.5 MG, BID
  8. FOSAMAX [Suspect]
     Indication: OSTEOPENIA
     Dosage: 5 MG, UNK
     Route: 048
     Dates: start: 20010920, end: 20020901
  9. FOSAMAX [Suspect]
     Dosage: 70 MG, UNK
     Route: 048
     Dates: start: 20080201, end: 20110901
  10. MIRAPEX [Concomitant]
     Dosage: 1 MG, BID
  11. CLARITIN [Concomitant]
     Indication: HYPERSENSITIVITY
     Dosage: 10 MG, QD
     Route: 048
  12. CALCIUM (UNSPECIFIED) [Concomitant]
     Dosage: 1200 DF, UNK
  13. FORTEO [Concomitant]
     Indication: OSTEOPENIA
     Dosage: 40 MICROGRAM, QD
  14. FOSAMAX [Suspect]
     Indication: OSTEOPOROSIS
     Dosage: 10 MG, UNK
     Route: 048
     Dates: start: 20030901, end: 20040201
  15. MIRAPEX [Concomitant]
     Indication: RESTLESS LEGS SYNDROME
     Dosage: 0.5 MG, QAM
     Dates: start: 19980101
  16. PRAMIPEXOLE DIHYCHLORIDE [Concomitant]
     Indication: RESTLESS LEGS SYNDROME
     Dosage: UNK
     Dates: start: 20000101
  17. DYAZIDE [Concomitant]
     Indication: HYPERTENSION
     Dosage: UNK MG, QD
  18. LOTENSION (BENAZEPRIL HYDROCHLORIDE) [Concomitant]
     Indication: HYPERTENSION
     Dosage: 20 MG, QD
     Route: 048
  19. ALENDRONATE SODIUM [Suspect]
     Indication: OSTEOPOROSIS
     Dosage: 70 MG, UNK
     Dates: start: 20080815, end: 20110808
  20. ALENDRONATE SODIUM [Suspect]
     Indication: OSTEOPENIA
  21. MIRAPEX [Concomitant]
     Dosage: 1 MG, QPM
  22. CALCIUM (UNSPECIFIED) [Concomitant]
     Indication: OSTEOPOROSIS
     Dosage: 600 MG, UNK
     Dates: start: 20010101
  23. CALCIUM (UNSPECIFIED) [Concomitant]
     Indication: OSTEOPENIA
     Dosage: 1.5 G, QD
  24. VITAMIN D [Concomitant]
     Indication: OSTEOPENIA
     Dosage: 50000 IU, UNK
     Dates: start: 20010101
  25. MIRAPEX [Concomitant]
     Dosage: 0.25 MG, BID
     Route: 048
  26. HORMONES (UNSPECIFIED) [Concomitant]
     Indication: OSTEOPOROSIS
     Dosage: UNK
     Dates: start: 19930101

REACTIONS (39)
  - SKIN CANCER [None]
  - TENDON DISORDER [None]
  - ASTHMA [None]
  - HYSTERECTOMY [None]
  - THORACIC VERTEBRAL FRACTURE [None]
  - HYPERLIPIDAEMIA [None]
  - STRESS URINARY INCONTINENCE [None]
  - SYNOVIAL CYST [None]
  - PATELLOFEMORAL PAIN SYNDROME [None]
  - BODY HEIGHT DECREASED [None]
  - JOINT EFFUSION [None]
  - DYSPNOEA [None]
  - OEDEMA PERIPHERAL [None]
  - OSTEOARTHRITIS [None]
  - MUSCLE SPASMS [None]
  - PAIN IN EXTREMITY [None]
  - CONSTIPATION [None]
  - LOW TURNOVER OSTEOPATHY [None]
  - ADENOTONSILLECTOMY [None]
  - CHONDROPATHY [None]
  - FALL [None]
  - LYME DISEASE [None]
  - NODULE [None]
  - FEMUR FRACTURE [None]
  - VITAMIN D DEFICIENCY [None]
  - MUSCLE STRAIN [None]
  - CONTUSION [None]
  - EXCORIATION [None]
  - IMPAIRED HEALING [None]
  - BLADDER OPERATION [None]
  - APPENDICECTOMY [None]
  - FOOT FRACTURE [None]
  - RIB FRACTURE [None]
  - EXOSTOSIS [None]
  - DRUG INEFFECTIVE [None]
  - MENISCUS LESION [None]
  - CYSTOPEXY [None]
  - TENDONITIS [None]
  - ABDOMINAL PAIN [None]
